FAERS Safety Report 14213146 (Version 1)
Quarter: 2017Q4

REPORT INFORMATION
  Report Type: Report from Study
  Country: DE (occurrence: DE)
  Receive Date: 20171122
  Receipt Date: 20171122
  Transmission Date: 20180321
  Serious: Yes (Hospitalization, Other)
  Sender: FDA-Public Use
  Company Number: DE-ROCHE-2028018

PATIENT
  Age: 71 Year
  Sex: Male
  Weight: 96.8 kg

DRUGS (5)
  1. BEVACIZUMAB. [Suspect]
     Active Substance: BEVACIZUMAB
     Indication: COLON CANCER
     Route: 042
     Dates: end: 20110817
  2. XELODA [Suspect]
     Active Substance: CAPECITABINE
     Indication: COLON CANCER
     Route: 048
     Dates: end: 20110817
  3. IRINOTECAN [Concomitant]
     Active Substance: IRINOTECAN
     Indication: COLON CANCER
     Route: 065
     Dates: start: 20110817
  4. GRANISETRON [Concomitant]
     Active Substance: GRANISETRON
     Indication: COLON CANCER
     Route: 042
     Dates: end: 20110817
  5. ATROPIN [Concomitant]
     Active Substance: ATROPINE
     Indication: COLON CANCER
     Route: 042
     Dates: end: 20110817

REACTIONS (6)
  - General physical health deterioration [Not Recovered/Not Resolved]
  - Hypotension [Not Recovered/Not Resolved]
  - Cardiac failure [Not Recovered/Not Resolved]
  - Hypertension [Unknown]
  - Exercise tolerance decreased [Recovered/Resolved with Sequelae]
  - Weight increased [Not Recovered/Not Resolved]

NARRATIVE: CASE EVENT DATE: 20110914
